FAERS Safety Report 4821179-3 (Version None)
Quarter: 2005Q4

REPORT INFORMATION
  Report Type: 
  Country: None (occurrence: None)
  Receive Date: 20051102
  Receipt Date: 20051014
  Transmission Date: 20060501
  Serious: Yes (Hospitalization)
  Sender: FDA-Public Use
  Company Number: USA0510111201

PATIENT
  Sex: Female

DRUGS (2)
  1. STRATTERA [Suspect]
  2. TYLENOL (CAPLET) [Concomitant]

REACTIONS (2)
  - PSYCHOTIC DISORDER [None]
  - SELF-MEDICATION [None]
